FAERS Safety Report 19008864 (Version 1)
Quarter: 2021Q1

REPORT INFORMATION
  Report Type: Spontaneous
  Country: US (occurrence: US)
  Receive Date: 20210315
  Receipt Date: 20210315
  Transmission Date: 20210420
  Serious: Yes (Other)
  Sender: FDA-Public Use
  Company Number: US-MYLANLABS-2021M1015187

PATIENT
  Age: 81 Year
  Sex: Male

DRUGS (1)
  1. GEMCITABINE. [Suspect]
     Active Substance: GEMCITABINE
     Indication: ACINAR CELL CARCINOMA OF PANCREAS
     Dosage: ON DAYS 1, 8 AND 15 OF A 28 DAYS CYCLE
     Route: 065

REACTIONS (2)
  - General physical health deterioration [Unknown]
  - Oedema peripheral [Unknown]
